FAERS Safety Report 21227804 (Version 1)
Quarter: 2022Q3

REPORT INFORMATION
  Report Type: Spontaneous
  Country: AT (occurrence: AT)
  Receive Date: 20220818
  Receipt Date: 20220818
  Transmission Date: 20221027
  Serious: Yes (Other)
  Sender: FDA-Public Use
  Company Number: AT-EMA-DD-20220811-7180171-103655

PATIENT

DRUGS (10)
  1. VALACYCLOVIR HYDROCHLORIDE [Suspect]
     Active Substance: VALACYCLOVIR HYDROCHLORIDE
     Indication: Antiviral prophylaxis
     Dosage: UNK
     Route: 065
  2. DARATUMUMAB [Suspect]
     Active Substance: DARATUMUMAB
     Indication: Plasma cell myeloma
     Dosage: UNK
     Route: 058
  3. RETACRIT [Suspect]
     Active Substance: EPOETIN ALFA-EPBX
     Indication: Anaemia
     Dosage: 30000 IU, WE,30000 INTERNATIONAL UNIT, QW
     Route: 065
  4. DENOSUMAB [Suspect]
     Active Substance: DENOSUMAB
     Indication: Product used for unknown indication
     Dosage: UNK, MONTHLY
     Route: 058
  5. SULFAMETROLE\TRIMETHOPRIM [Suspect]
     Active Substance: SULFAMETROLE\TRIMETHOPRIM
     Indication: Antibiotic prophylaxis
     Dosage: UNK(LIDAPRIM FORTE WAS ADMINISITERED EVERY 4 WEEKS.)
     Route: 065
  6. LENALIDOMIDE [Suspect]
     Active Substance: LENALIDOMIDE
     Indication: Plasma cell myeloma
     Dosage: 15 MG,15 MILLIGRAM (DAY 1-21)
     Route: 065
  7. LENALIDOMIDE [Suspect]
     Active Substance: LENALIDOMIDE
     Dosage: 10 MG,10 MILLIGRAM
     Route: 065
  8. LEVOSIMENDAN [Suspect]
     Active Substance: LEVOSIMENDAN
     Indication: Cardiac failure
     Dosage: UNK
     Route: 065
     Dates: start: 202203
  9. DEXAMETHASONE [Suspect]
     Active Substance: DEXAMETHASONE
     Indication: Plasma cell myeloma
     Dosage: 20 MG, WE,20 MILLIGRAM, QW
     Route: 065
  10. GRANULOCYTE COLONY-STIMULATING FACTOR NOS [Concomitant]
     Active Substance: GRANULOCYTE COLONY-STIMULATING FACTOR NOS
     Indication: Neutropenia
     Dosage: UNK
     Route: 065

REACTIONS (5)
  - Thrombocytopenia [Recovered/Resolved]
  - Cardiac failure [Unknown]
  - Neutropenia [Recovered/Resolved]
  - Coronavirus infection [Unknown]
  - Therapy interrupted [Unknown]

NARRATIVE: CASE EVENT DATE: 20220301
